FAERS Safety Report 5065739-6 (Version None)
Quarter: 2006Q3

REPORT INFORMATION
  Report Type: 
  Country: None (occurrence: None)
  Receive Date: 20060731
  Receipt Date: 20060515
  Transmission Date: 20061208
  Serious: Yes (Life-Threatening, Hospitalization, Disabling)
  Sender: FDA-Public Use
  Company Number: GB-ROCHE-447825

PATIENT
  Age: 15 Year
  Sex: Female

DRUGS (12)
  1. MYCOPHENOLATE MOFETIL [Suspect]
     Route: 048
     Dates: start: 20060403, end: 20060429
  2. MYCOPHENOLATE MOFETIL [Suspect]
     Route: 048
     Dates: start: 20060511
  3. FK506 [Suspect]
     Route: 048
     Dates: start: 20060403
  4. FK506 [Suspect]
     Route: 048
     Dates: start: 20060419
  5. PREDNISOLONE [Suspect]
     Route: 048
     Dates: start: 20060403
  6. DAPSONE [Concomitant]
  7. ASPIRIN [Concomitant]
  8. OMEPRAZOLE [Concomitant]
  9. ALFACALCIDOL [Concomitant]
  10. SODIUM BICARBONATE [Concomitant]
  11. FUROSEMIDE [Concomitant]
  12. ETHINYL ESTRADIOL TAB [Concomitant]

REACTIONS (8)
  - COMA [None]
  - CONVULSION [None]
  - ENCEPHALOPATHY [None]
  - FALL [None]
  - INFECTION [None]
  - SMALL INTESTINAL OBSTRUCTION [None]
  - STATUS EPILEPTICUS [None]
  - VOMITING [None]
